FAERS Safety Report 8410809-5 (Version None)
Quarter: 2012Q2

REPORT INFORMATION
  Report Type: 
  Country: None (occurrence: None)
  Receive Date: 20120605
  Receipt Date: 20120530
  Transmission Date: 20120825
  Serious: Yes (Death, Other)
  Sender: FDA-Public Use
  Company Number: VE-PFIZER INC-2011191912

PATIENT
  Age: 79 Year
  Sex: Male

DRUGS (4)
  1. LIPITOR [Suspect]
     Indication: SILENT MYOCARDIAL INFARCTION
     Dosage: 40 MG, 1X/DAY
     Route: 048
     Dates: start: 20060101
  2. ALDACTONE [Concomitant]
     Dosage: 25 MG, UNK
     Route: 048
  3. CARVEDILOL [Concomitant]
     Route: 048
  4. LASIX [Concomitant]
     Indication: FLUID RETENTION
     Dosage: 40 MG, UNK
     Route: 048

REACTIONS (4)
  - DEATH [None]
  - FATIGUE [None]
  - MYOCARDIAL INFARCTION [None]
  - OEDEMA PERIPHERAL [None]
